FAERS Safety Report 8190999-2 (Version None)
Quarter: 2012Q1

REPORT INFORMATION
  Report Type: 
  Country: None (occurrence: None)
  Receive Date: 20120307
  Receipt Date: 20120306
  Transmission Date: 20120608
  Serious: Yes (Hospitalization)
  Sender: FDA-Public Use
  Company Number: IT-BAYER-2012-022151

PATIENT
  Age: 71 Year
  Sex: Male

DRUGS (5)
  1. NOVORAPID [Concomitant]
     Indication: DIABETES MELLITUS
     Dosage: DAILY DOSE 23 DF
     Route: 058
  2. ACETAMINOPHEN [Suspect]
     Indication: PYREXIA
     Dosage: DAILY DOSE 1000 MG
     Route: 042
     Dates: start: 20120213, end: 20120226
  3. CIPROFLOXACIN HCL [Suspect]
     Indication: BRONCHOPNEUMONIA
     Dosage: DAILY DOSE 200 MG
     Route: 042
     Dates: start: 20120220, end: 20120226
  4. ULTRAVIST 150 [Suspect]
     Indication: COMPUTERISED TOMOGRAM THORAX
     Dosage: 50 ML, PRN
     Route: 042
     Dates: start: 20120222, end: 20120222
  5. LANTUS [Concomitant]
     Indication: DIABETES MELLITUS
     Dosage: DAILY DOSE 15 DF
     Route: 058

REACTIONS (3)
  - STEVENS-JOHNSON SYNDROME [None]
  - HYPERPYREXIA [None]
  - TOXIC EPIDERMAL NECROLYSIS [None]
